FAERS Safety Report 6744881-5 (Version None)
Quarter: 2010Q2

REPORT INFORMATION
  Report Type: 
  Country: None (occurrence: None)
  Receive Date: 20100527
  Receipt Date: 20100420
  Transmission Date: 20101027
  Serious: No
  Sender: FDA-Public Use
  Company Number: US-BRISTOL-MYERS SQUIBB COMPANY-15072960

PATIENT
  Age: 70 Year
  Sex: Female

DRUGS (2)
  1. ONGLYZA [Suspect]
  2. METFORMIN HYDROCHLORIDE [Suspect]
     Dosage: METFORMIN 500

REACTIONS (4)
  - HEADACHE [None]
  - PRURITUS [None]
  - RASH [None]
  - SINUS DISORDER [None]
